FAERS Safety Report 13847652 (Version 1)
Quarter: 2017Q3

REPORT INFORMATION
  Report Type: Spontaneous
  Country: JP (occurrence: JP)
  Receive Date: 20170809
  Receipt Date: 20170809
  Transmission Date: 20171127
  Serious: Yes (Other)
  Sender: FDA-Public Use
  Company Number: JP-BRISTOL-MYERS SQUIBB COMPANY-BMS-2017-068927

PATIENT
  Age: 68 Year
  Sex: Female

DRUGS (1)
  1. METGLUCO [Suspect]
     Active Substance: METFORMIN HYDROCHLORIDE
     Indication: DIABETES MELLITUS
     Dosage: 750 MG, TID
     Route: 048
     Dates: start: 201703

REACTIONS (2)
  - Rhabdomyolysis [Not Recovered/Not Resolved]
  - Lactic acidosis [Not Recovered/Not Resolved]
